FAERS Safety Report 4646868-5 (Version None)
Quarter: 2005Q2

REPORT INFORMATION
  Report Type: 
  Country: None (occurrence: None)
  Receive Date: 20050331
  Receipt Date: 20050114
  Transmission Date: 20051028
  Serious: No
  Sender: FDA-Public Use
  Company Number: 05P-163-0286765-00

PATIENT
  Age: 58 Year
  Sex: Male
  Weight: 109 kg

DRUGS (6)
  1. HUMIRA [Suspect]
     Indication: RHEUMATOID ARTHRITIS
     Dosage: 40 MG, 1 IN 2 WK, SUBCUTANEOUS
     Route: 058
     Dates: start: 20031201
  2. PREDNISONE [Concomitant]
  3. LEFLUNOMIDE [Concomitant]
  4. CELECOXIB [Concomitant]
  5. CO-DIOVAN [Concomitant]
  6. AMLODIPINE BESYLATE [Concomitant]

REACTIONS (4)
  - ARTHRALGIA [None]
  - CONDITION AGGRAVATED [None]
  - PROSTATIC SPECIFIC ANTIGEN INCREASED [None]
  - RED BLOOD CELL SEDIMENTATION RATE INCREASED [None]
